FAERS Safety Report 6358551-9 (Version None)
Quarter: 2009Q3

REPORT INFORMATION
  Report Type: 
  Country: None (occurrence: None)
  Receive Date: 20090914
  Receipt Date: 20090902
  Transmission Date: 20100115
  Serious: Yes (Other)
  Sender: FDA-Public Use
  Company Number: 2009AP003437

PATIENT
  Age: 81 Year
  Sex: Male

DRUGS (1)
  1. CAPTOPRIL [Suspect]

REACTIONS (1)
  - LICHENOID KERATOSIS [None]
